FAERS Safety Report 9729424 (Version 3)
Quarter: 2015Q3

REPORT INFORMATION
  Report Type: Spontaneous
  Country: US (occurrence: US)
  Receive Date: 20131204
  Receipt Date: 20150804
  Transmission Date: 20151125
  Serious: Yes (Hospitalization)
  Sender: FDA-Public Use
  Company Number: US-GILEAD-2009-0021146

PATIENT
  Age: 53 Year
  Sex: Female
  Weight: 83.01 kg

DRUGS (18)
  1. LETAIRIS [Suspect]
     Active Substance: AMBRISENTAN
     Indication: PULMONARY ARTERIAL HYPERTENSION
     Route: 048
     Dates: start: 20070913
  2. ADVAIR HFA [Concomitant]
     Active Substance: FLUTICASONE PROPIONATE\SALMETEROL XINAFOATE
  3. BYETTA [Concomitant]
     Active Substance: EXENATIDE
  4. POTASSIUM [Concomitant]
     Active Substance: POTASSIUM
  5. NEXIUM [Concomitant]
     Active Substance: ESOMEPRAZOLE MAGNESIUM
  6. XOPENEX [Concomitant]
     Active Substance: LEVALBUTEROL HYDROCHLORIDE
  7. VIAGRA [Concomitant]
     Active Substance: SILDENAFIL CITRATE
  8. LANTUS [Concomitant]
     Active Substance: INSULIN GLARGINE
  9. RESTASIS [Concomitant]
     Active Substance: CYCLOSPORINE
  10. DEMADEX [Concomitant]
     Active Substance: TORSEMIDE
  11. LIPITOR [Concomitant]
     Active Substance: ATORVASTATIN CALCIUM
  12. NOVOLOG [Concomitant]
     Active Substance: INSULIN ASPART
  13. COUMADIN [Concomitant]
     Active Substance: WARFARIN SODIUM
  14. SPIRONOLACTONE. [Concomitant]
     Active Substance: SPIRONOLACTONE
  15. FLONASE [Concomitant]
     Active Substance: FLUTICASONE PROPIONATE
  16. MAGNESIUM [Concomitant]
     Active Substance: MAGNESIUM
  17. ZYRTEC [Concomitant]
     Active Substance: CETIRIZINE HYDROCHLORIDE
  18. DICYCLOMINE [Concomitant]
     Active Substance: DICYCLOMINE HYDROCHLORIDE

REACTIONS (2)
  - Fluid overload [Not Recovered/Not Resolved]
  - Dyspnoea [Recovered/Resolved]

NARRATIVE: CASE EVENT DATE: 20081001
